FAERS Safety Report 8183978-2 (Version None)
Quarter: 2012Q1

REPORT INFORMATION
  Report Type: 
  Country: None (occurrence: None)
  Receive Date: 20120305
  Receipt Date: 20120227
  Transmission Date: 20120608
  Serious: Yes (Congenital Anomaly, Other)
  Sender: FDA-Public Use
  Company Number: US-TEVA-325012USA

PATIENT

DRUGS (3)
  1. CARBAMAZEPINE [Suspect]
     Dosage: 200MG
     Route: 064
  2. LAMOTRIGINE [Suspect]
     Dosage: 100MG
     Route: 064
  3. CLONAZEPAM [Suspect]
     Dosage: 1MG
     Route: 064

REACTIONS (1)
  - POLYDACTYLY [None]
